FAERS Safety Report 10251168 (Version 1)
Quarter: 2014Q2

REPORT INFORMATION
  Report Type: Spontaneous
  Country: US (occurrence: US)
  Receive Date: 20140620
  Receipt Date: 20140620
  Transmission Date: 20141212
  Serious: Yes (Hospitalization)
  Sender: FDA-Public Use
  Company Number: DE-ASTRAZENECA-2014SE45088

PATIENT
  Sex: Male

DRUGS (1)
  1. VIMOVO [Suspect]
     Dosage: 375/20
     Route: 048

REACTIONS (1)
  - Gastrointestinal haemorrhage [Unknown]
